FAERS Safety Report 13592868 (Version 1)
Quarter: 2017Q2

REPORT INFORMATION
  Report Type: Spontaneous
  Country: JP (occurrence: JP)
  Receive Date: 20170530
  Receipt Date: 20170530
  Transmission Date: 20170830
  Serious: Yes (Other)
  Sender: FDA-Public Use
  Company Number: JP-BAYER-2017-096403

PATIENT
  Sex: Female

DRUGS (2)
  1. HEPARIN [Concomitant]
     Active Substance: HEPARIN SODIUM
     Indication: ANTICOAGULANT THERAPY
  2. ACETYLSALICYLIC ACID({=100 MG) [Suspect]
     Active Substance: ASPIRIN
     Indication: ANTICOAGULANT THERAPY
     Dosage: UNK
     Route: 048
     Dates: start: 2007

REACTIONS (6)
  - Exposure during pregnancy [None]
  - Foetal death [None]
  - Systemic lupus erythematosus [None]
  - Proteinuria [None]
  - Lupus nephritis [None]
  - Placental infarction [None]
